FAERS Safety Report 9932791 (Version 1)
Quarter: 2014Q1

REPORT INFORMATION
  Report Type: Spontaneous
  Country: US (occurrence: None)
  Receive Date: 20140227
  Receipt Date: 20140227
  Transmission Date: 20141002
  Serious: Yes (Hospitalization)
  Sender: FDA-Public Use
  Company Number: None

PATIENT
  Age: 62 Year
  Sex: Female
  Weight: 83.4 kg

DRUGS (9)
  1. WARFARIN 2 MG [Suspect]
     Indication: ATRIAL FIBRILLATION
     Dosage: 2 MG ( 1 PILL) QD ORAL
     Route: 048
  2. ALBUTEROL [Concomitant]
  3. AMIODARONE [Concomitant]
  4. ASPIRIN [Concomitant]
  5. BUPROPRION [Concomitant]
  6. CARVEDILOL [Concomitant]
  7. CEFEPIME [Concomitant]
  8. VANCOMYCIN [Concomitant]
  9. SIMVASTATIN [Concomitant]

REACTIONS (4)
  - Feeding tube complication [None]
  - Catheter site haemorrhage [None]
  - Decubitus ulcer [None]
  - Wound secretion [None]
